FAERS Safety Report 6141540-7 (Version None)
Quarter: 2009Q1

REPORT INFORMATION
  Report Type: 
  Country: None (occurrence: None)
  Receive Date: 20090331
  Receipt Date: 20090318
  Transmission Date: 20090719
  Serious: Yes (Hospitalization)
  Sender: FDA-Public Use
  Company Number: 230154K09BRA

PATIENT
  Age: 39 Year
  Sex: Male

DRUGS (1)
  1. REBIF [Suspect]
     Dosage: 44 MCG, 3 IN 1 WEEKS, SUBCUTANEOUS
     Route: 058
     Dates: start: 20071203, end: 20090101

REACTIONS (6)
  - ATAXIA [None]
  - BALANCE DISORDER [None]
  - CELLULITIS [None]
  - MULTIPLE SCLEROSIS RELAPSE [None]
  - MUSCULAR WEAKNESS [None]
  - PAIN IN EXTREMITY [None]
